FAERS Safety Report 24798184 (Version 1)
Quarter: 2025Q1

REPORT INFORMATION
  Report Type: Spontaneous
  Country: US (occurrence: US)
  Receive Date: 20250102
  Receipt Date: 20250102
  Transmission Date: 20250408
  Serious: No
  Sender: CELLTRION
  Company Number: US-CELLTRION INC.-2024US019812

PATIENT

DRUGS (4)
  1. TRUXIMA [Suspect]
     Active Substance: RITUXIMAB-ABBS
     Indication: Castleman^s disease
     Dosage: 900 MG, WEEKLY
     Route: 042
     Dates: start: 20240812
  2. TRUXIMA [Suspect]
     Active Substance: RITUXIMAB-ABBS
     Dosage: ONCE A WEEK
     Route: 042
     Dates: start: 20240805
  3. TRUXIMA [Suspect]
     Active Substance: RITUXIMAB-ABBS
     Dosage: ONCE A WEEK
     Route: 042
  4. TRUXIMA [Suspect]
     Active Substance: RITUXIMAB-ABBS
     Dosage: ONCE A WEEK
     Route: 042

REACTIONS (1)
  - Off label use [Unknown]

NARRATIVE: CASE EVENT DATE: 20240805
